FAERS Safety Report 22650719 (Version 1)
Quarter: 2023Q2

REPORT INFORMATION
  Report Type: Spontaneous
  Country: US (occurrence: None)
  Receive Date: 20230627
  Receipt Date: 20230627
  Transmission Date: 20230722
  Serious: Yes (Hospitalization)
  Sender: FDA-Public Use
  Company Number: None

PATIENT
  Age: 33 Year
  Sex: Female
  Weight: 54 kg

DRUGS (4)
  1. .DELTA.8-TETRAHYDROCANNABINOL\HERBALS [Suspect]
     Active Substance: .DELTA.8-TETRAHYDROCANNABINOL\HERBALS
     Indication: Anxiety
     Dates: start: 20230613, end: 20230623
  2. LEVOTHYROXINE [Concomitant]
     Active Substance: LEVOTHYROXINE
  3. ZOLOFT [Concomitant]
     Active Substance: SERTRALINE HYDROCHLORIDE
  4. VITAMINS [Concomitant]
     Active Substance: VITAMINS

REACTIONS (22)
  - Dizziness [None]
  - Depersonalisation/derealisation disorder [None]
  - Lactation puerperal increased [None]
  - Muscle spasms [None]
  - Paraesthesia [None]
  - Pain in extremity [None]
  - Movement disorder [None]
  - Sensory loss [None]
  - Nystagmus [None]
  - Heart rate increased [None]
  - Oxygen saturation decreased [None]
  - Blood pressure immeasurable [None]
  - Hyperventilation [None]
  - Hyperhidrosis [None]
  - Vomiting [None]
  - Feeling abnormal [None]
  - Discomfort [None]
  - Tonic clonic movements [None]
  - Thinking abnormal [None]
  - Speech disorder [None]
  - Pain [None]
  - Memory impairment [None]

NARRATIVE: CASE EVENT DATE: 20230623
